FAERS Safety Report 6807515-7 (Version None)
Quarter: 2010Q2

REPORT INFORMATION
  Report Type: 
  Country: None (occurrence: None)
  Receive Date: 20100629
  Receipt Date: 20081030
  Transmission Date: 20101027
  Serious: No
  Sender: FDA-Public Use
  Company Number: US-PFIZER INC-2008091206

PATIENT
  Sex: Male
  Weight: 90.9 kg

DRUGS (5)
  1. VIAGRA [Suspect]
     Indication: ERECTILE DYSFUNCTION
     Dates: start: 20081001
  2. TACROLIMUS [Concomitant]
  3. CARDIZEM [Concomitant]
  4. LABETALOL HCL [Concomitant]
  5. DIAZEPAM [Concomitant]

REACTIONS (3)
  - DRUG INEFFECTIVE [None]
  - FLATULENCE [None]
  - SINUS CONGESTION [None]
